FAERS Safety Report 9349680 (Version 1)
Quarter: 2013Q2

REPORT INFORMATION
  Report Type: Spontaneous
  Country: AU (occurrence: None)
  Receive Date: 20130611
  Receipt Date: 20130611
  Transmission Date: 20140414
  Serious: Yes (Hospitalization)
  Sender: FDA-Public Use
  Company Number: 2013AP005536

PATIENT
  Age: 88 Year
  Sex: Female

DRUGS (15)
  1. CARVEDILOL [Suspect]
  2. WARFARIN (WARFARIN) [Concomitant]
  3. ENDONE [Suspect]
  4. ISOSORBIDE MONONITRATE [Suspect]
  5. FUROSEMIDE [Suspect]
     Indication: CARDIAC FAILURE
  6. LIPITOR (ATORVASTATIN CALCIUM) [Suspect]
  7. NITROGLYCERIN [Suspect]
  8. PREDNISONE [Suspect]
  9. PARACETAMOL [Suspect]
  10. DABIGATRAN [Suspect]
     Indication: ATRIAL FIBRILLATION
  11. BUPRENORPHINE [Suspect]
  12. DILTIAZEM [Suspect]
  13. PRANTAL [Suspect]
  14. SENOKOT [Suspect]
  15. VITAMIN D NOS [Suspect]

REACTIONS (6)
  - Metrorrhagia [None]
  - Nausea [None]
  - Hyperkalaemia [None]
  - Atrial flutter [None]
  - Renal failure acute [None]
  - Urinary tract infection [None]
